FAERS Safety Report 25753870 (Version 2)
Quarter: 2025Q4

REPORT INFORMATION
  Report Type: Spontaneous
  Country: EU (occurrence: EU)
  Receive Date: 20250903
  Receipt Date: 20251010
  Transmission Date: 20260118
  Serious: Yes (Other)
  Sender: SANDOZ
  Company Number: EU-SANDOZ-SDZ2025DE063506

PATIENT
  Sex: Male
  Weight: 57 kg

DRUGS (2)
  1. IBUPROFEN [Suspect]
     Active Substance: IBUPROFEN
     Dosage: 600 MG
     Route: 065
  2. IBUPROFEN [Suspect]
     Active Substance: IBUPROFEN
     Indication: Product used for unknown indication
     Dosage: UNK; STRENGTH 400 MG
     Route: 048

REACTIONS (8)
  - Throat cancer [Unknown]
  - Choking [Unknown]
  - Back pain [Unknown]
  - Cough [Unknown]
  - Stress [Unknown]
  - Mucosal disorder [Unknown]
  - Dysphagia [Unknown]
  - Wrong technique in product usage process [Unknown]
